FAERS Safety Report 19376614 (Version 1)
Quarter: 2021Q2

REPORT INFORMATION
  Report Type: Spontaneous
  Country: US (occurrence: US)
  Receive Date: 20210604
  Receipt Date: 20210604
  Transmission Date: 20210717
  Serious: Yes (Hospitalization)
  Sender: FDA-Public Use
  Company Number: US-MYLANLABS-2021M1032404

PATIENT
  Age: 15 Year
  Sex: Male

DRUGS (18)
  1. ETOPOSIDE. [Suspect]
     Active Substance: ETOPOSIDE
     Indication: X-LINKED LYMPHOPROLIFERATIVE SYNDROME
     Route: 042
  2. METHYLPREDNISOLONE. [Suspect]
     Active Substance: METHYLPREDNISOLONE
     Indication: X-LINKED LYMPHOPROLIFERATIVE SYNDROME
     Route: 042
  3. METHYLPREDNISOLONE. [Suspect]
     Active Substance: METHYLPREDNISOLONE
     Indication: HAEMOPHAGOCYTIC LYMPHOHISTIOCYTOSIS
  4. METHOTREXATE. [Suspect]
     Active Substance: METHOTREXATE
     Indication: EPSTEIN-BARR VIRUS INFECTION
  5. METHOTREXATE. [Suspect]
     Active Substance: METHOTREXATE
     Indication: HAEMOPHAGOCYTIC LYMPHOHISTIOCYTOSIS
  6. GANCICLOVIR. [Suspect]
     Active Substance: GANCICLOVIR
     Indication: X-LINKED LYMPHOPROLIFERATIVE SYNDROME
     Route: 065
  7. GANCICLOVIR. [Suspect]
     Active Substance: GANCICLOVIR
     Indication: EPSTEIN-BARR VIRUS INFECTION
  8. METHYLPREDNISOLONE. [Suspect]
     Active Substance: METHYLPREDNISOLONE
     Indication: EPSTEIN-BARR VIRUS INFECTION
  9. METHYLPREDNISOLONE. [Suspect]
     Active Substance: METHYLPREDNISOLONE
     Indication: EPSTEIN-BARR VIRUS INFECTION
  10. ETOPOSIDE. [Suspect]
     Active Substance: ETOPOSIDE
     Indication: HAEMOPHAGOCYTIC LYMPHOHISTIOCYTOSIS
  11. ETOPOSIDE. [Suspect]
     Active Substance: ETOPOSIDE
     Indication: EPSTEIN-BARR VIRUS INFECTION
  12. RITUXIMAB. [Suspect]
     Active Substance: RITUXIMAB
     Indication: HAEMOPHAGOCYTIC LYMPHOHISTIOCYTOSIS
  13. METHOTREXATE. [Suspect]
     Active Substance: METHOTREXATE
     Indication: X-LINKED LYMPHOPROLIFERATIVE SYNDROME
     Dosage: RECEIVED FOUR DOSES
     Route: 037
  14. GANCICLOVIR. [Suspect]
     Active Substance: GANCICLOVIR
     Indication: HAEMOPHAGOCYTIC LYMPHOHISTIOCYTOSIS
  15. METHYLPREDNISOLONE. [Suspect]
     Active Substance: METHYLPREDNISOLONE
     Indication: HAEMOPHAGOCYTIC LYMPHOHISTIOCYTOSIS
  16. RITUXIMAB. [Suspect]
     Active Substance: RITUXIMAB
     Indication: X-LINKED LYMPHOPROLIFERATIVE SYNDROME
     Dosage: RECEIVED FIVE DOSES
     Route: 065
  17. RITUXIMAB. [Suspect]
     Active Substance: RITUXIMAB
     Indication: EPSTEIN-BARR VIRUS INFECTION
  18. METHYLPREDNISOLONE. [Suspect]
     Active Substance: METHYLPREDNISOLONE
     Indication: X-LINKED LYMPHOPROLIFERATIVE SYNDROME
     Dosage: RECEIVED FOUR DOSES
     Route: 037

REACTIONS (1)
  - Drug ineffective [Unknown]
